FAERS Safety Report 18245420 (Version 1)
Quarter: 2020Q3

REPORT INFORMATION
  Report Type: Spontaneous
  Country: ES (occurrence: ES)
  Receive Date: 20200908
  Receipt Date: 20200908
  Transmission Date: 20201103
  Serious: Yes (Other)
  Sender: FDA-Public Use
  Company Number: ES-CANTON LABORATORIES, LLC-2089514

PATIENT
  Age: 73 Year
  Sex: Female

DRUGS (8)
  1. NAPROSYN [Suspect]
     Active Substance: NAPROXEN
     Indication: ROTATOR CUFF SYNDROME
     Route: 048
     Dates: start: 20200812, end: 202008
  2. OMEPRAZOL STADA [Concomitant]
     Active Substance: OMEPRAZOLE
     Route: 065
  3. RYTMONORM [Concomitant]
     Active Substance: PROPAFENONE
     Route: 065
  4. KOMBOGLYZE [Concomitant]
     Active Substance: METFORMIN HYDROCHLORIDE\SAXAGLIPTIN
     Route: 065
  5. PARACETAMOL [Concomitant]
     Active Substance: ACETAMINOPHEN
     Route: 065
  6. ADIRO [Concomitant]
     Active Substance: ASPIRIN
     Route: 065
  7. LEXATIN [Concomitant]
     Route: 065
  8. SIMVASTATINA [Concomitant]
     Active Substance: SIMVASTATIN
     Route: 065

REACTIONS (3)
  - Syncope [Unknown]
  - Urticaria [Unknown]
  - Chest discomfort [Unknown]

NARRATIVE: CASE EVENT DATE: 20200812
